FAERS Safety Report 10650262 (Version 9)
Quarter: 2015Q2

REPORT INFORMATION
  Report Type: Spontaneous
  Country: US (occurrence: US)
  Receive Date: 20141212
  Receipt Date: 20150610
  Transmission Date: 20150821
  Serious: Yes (Other)
  Sender: FDA-Public Use
  Company Number: US-GLAXOSMITHKLINE-A1089200A

PATIENT
  Age: 64 Year
  Sex: Female

DRUGS (12)
  1. ADVAIR DISKUS [Suspect]
     Active Substance: FLUTICASONE PROPIONATE\SALMETEROL XINAFOATE
     Dosage: UNK
  2. VERAPAMIL [Concomitant]
     Active Substance: VERAPAMIL HYDROCHLORIDE
  3. ADVAIR DISKUS [Suspect]
     Active Substance: FLUTICASONE PROPIONATE\SALMETEROL XINAFOATE
     Indication: ASTHMA
     Dosage: 1 PUFF(S), BID
     Route: 055
     Dates: start: 2005
  4. XOPENEX [Concomitant]
     Active Substance: LEVALBUTEROL HYDROCHLORIDE
  5. ATENOLOL. [Concomitant]
     Active Substance: ATENOLOL
  6. KLONOPIN [Concomitant]
     Active Substance: CLONAZEPAM
  7. LYRICA [Suspect]
     Active Substance: PREGABALIN
     Indication: FIBROMYALGIA
     Dosage: UNK, U
  8. SINGULAIR [Concomitant]
     Active Substance: MONTELUKAST SODIUM
  9. ADVAIR DISKUS [Suspect]
     Active Substance: FLUTICASONE PROPIONATE\SALMETEROL XINAFOATE
     Dosage: 500/50MCG, U
     Route: 065
     Dates: start: 2010
  10. TRAZODONE [Concomitant]
     Active Substance: TRAZODONE HYDROCHLORIDE
  11. ALLEGRA [Concomitant]
     Active Substance: FEXOFENADINE HYDROCHLORIDE
  12. PREVACID [Concomitant]
     Active Substance: LANSOPRAZOLE

REACTIONS (9)
  - Large intestine polyp [Unknown]
  - Total lung capacity decreased [Unknown]
  - Loss of consciousness [Unknown]
  - Fall [Recovering/Resolving]
  - Dyspnoea [Unknown]
  - Oxygen saturation abnormal [Unknown]
  - Underdose [Unknown]
  - Upper limb fracture [Unknown]
  - Fatigue [Unknown]

NARRATIVE: CASE EVENT DATE: 201408
